FAERS Safety Report 12672153 (Version 1)
Quarter: 2016Q3

REPORT INFORMATION
  Report Type: Spontaneous
  Country: US (occurrence: US)
  Receive Date: 20160822
  Receipt Date: 20160822
  Transmission Date: 20161109
  Serious: No
  Sender: FDA-Public Use
  Company Number: US-PFIZER INC-2016392849

PATIENT
  Sex: Female
  Weight: 58.97 kg

DRUGS (4)
  1. ADVIL [Suspect]
     Active Substance: IBUPROFEN
     Indication: PAIN
     Dosage: UNK UNK, AS NEEDED
  2. ADVIL [Suspect]
     Active Substance: IBUPROFEN
     Indication: NASOPHARYNGITIS
  3. ADVIL [Suspect]
     Active Substance: IBUPROFEN
     Indication: TOOTH DISORDER
  4. ADVIL [Suspect]
     Active Substance: IBUPROFEN
     Indication: PAIN IN EXTREMITY

REACTIONS (5)
  - Nausea [Unknown]
  - Dyspepsia [Unknown]
  - Abdominal pain upper [Unknown]
  - Malaise [Unknown]
  - Pain [Unknown]
